FAERS Safety Report 7070329-X (Version None)
Quarter: 2010Q4

REPORT INFORMATION
  Report Type: 
  Country: None (occurrence: None)
  Receive Date: 20101028
  Receipt Date: 20101014
  Transmission Date: 20110411
  Serious: No
  Sender: FDA-Public Use
  Company Number: US-WYE-H18187310

PATIENT
  Sex: Male
  Weight: 58.11 kg

DRUGS (3)
  1. PANTOPRAZOLE [Suspect]
     Indication: DYSPEPSIA
     Dates: start: 20100801
  2. ADVAIR DISKUS 100/50 [Concomitant]
  3. MESALAMINE [Concomitant]

REACTIONS (4)
  - GASTRITIS [None]
  - REGURGITATION [None]
  - SINUSITIS [None]
  - TOOTH INFECTION [None]
